FAERS Safety Report 6369428-7 (Version None)
Quarter: 2009Q3

REPORT INFORMATION
  Report Type: 
  Country: None (occurrence: None)
  Receive Date: 20090917
  Receipt Date: 20090910
  Transmission Date: 20100115
  Serious: Yes (Hospitalization)
  Sender: FDA-Public Use
  Company Number: 2008AL004425

PATIENT
  Age: 65 Year
  Sex: Female
  Weight: 81.6475 kg

DRUGS (61)
  1. DIGOXIN [Suspect]
     Indication: ARRHYTHMIA
     Dosage: 0.25MG, DAILY, PO
     Route: 048
  2. LANOXIN [Concomitant]
  3. NITROGLYCERIN [Concomitant]
  4. TOPROL-XL [Concomitant]
  5. LISINOPRIL [Concomitant]
  6. LEVOTHYROXINE SODIUM [Concomitant]
  7. HUMALOG [Concomitant]
  8. LANTUS [Concomitant]
  9. BUMEX [Concomitant]
  10. LOVASTATIN [Concomitant]
  11. CARAFATE [Concomitant]
  12. GABAPENTIN [Concomitant]
  13. LEVAQUIN [Concomitant]
  14. DARVOCET [Concomitant]
  15. IMDUR [Concomitant]
  16. SYNTHROID [Concomitant]
  17. OMEPRAZOLE [Concomitant]
  18. TIAGABINE HCL [Concomitant]
  19. METOPROLOL [Concomitant]
  20. NOVOLIN R [Concomitant]
  21. METFORMIN HCL [Concomitant]
  22. SUCRALFATE [Concomitant]
  23. TEMAZEPAM [Concomitant]
  24. GLYNASE [Concomitant]
  25. MEXITIL [Concomitant]
  26. MONOPRIL [Concomitant]
  27. QUINIDEX [Concomitant]
  28. ASPIRIN [Concomitant]
  29. QUININE [Concomitant]
  30. ZYRTEC [Concomitant]
  31. AVANDAMET [Concomitant]
  32. DOXEPIN HCL [Concomitant]
  33. LASIX [Concomitant]
  34. ZOCOR [Concomitant]
  35. TYLENOL (CAPLET) [Concomitant]
  36. ISOSORBIDE [Concomitant]
  37. APEDIA [Concomitant]
  38. HUMULIN R [Concomitant]
  39. POTASSIUM CHLORIDE [Concomitant]
  40. GENTAMICIN [Concomitant]
  41. VIOXX [Concomitant]
  42. GLUCOPHAGE [Concomitant]
  43. AMBIENT [Concomitant]
  44. FOSINPRIL [Concomitant]
  45. NABUMETONE [Concomitant]
  46. HYDRO-TUSSIN [Concomitant]
  47. ZITHROMAX [Concomitant]
  48. NIFEDIPINE [Concomitant]
  49. ROZEREM [Concomitant]
  50. TRICOR [Concomitant]
  51. XALATAN [Concomitant]
  52. ANTARA (MICRONIZED) [Concomitant]
  53. MAG OXIDE [Concomitant]
  54. PROMETHEGAN [Concomitant]
  55. GAIN-TUSS [Concomitant]
  56. AZITHROMYCIN [Concomitant]
  57. LORATADINE [Concomitant]
  58. FLUCONAZOLE [Concomitant]
  59. BALACET [Concomitant]
  60. APAP W/ CODEINE [Concomitant]
  61. AMITRITYLIN [Concomitant]

REACTIONS (20)
  - CARDIAC FAILURE CHRONIC [None]
  - COUGH [None]
  - DIABETIC RETINOPATHY [None]
  - DIARRHOEA [None]
  - DIZZINESS [None]
  - HEADACHE [None]
  - HEART INJURY [None]
  - HEART RATE DECREASED [None]
  - HYPERKALAEMIA [None]
  - ISCHAEMIC CARDIOMYOPATHY [None]
  - MULTIPLE INJURIES [None]
  - PYREXIA [None]
  - RENAL FAILURE [None]
  - RETINAL HAEMORRHAGE [None]
  - RETINAL TEAR [None]
  - THERAPEUTIC AGENT TOXICITY [None]
  - VISION BLURRED [None]
  - VISUAL IMPAIRMENT [None]
  - VITREOUS DETACHMENT [None]
  - VITREOUS HAEMORRHAGE [None]
